FAERS Safety Report 6959367-2 (Version None)
Quarter: 2010Q3

REPORT INFORMATION
  Report Type: 
  Country: None (occurrence: None)
  Receive Date: 20100831
  Receipt Date: 20100831
  Transmission Date: 20110219
  Serious: Yes (Other)
  Sender: FDA-Public Use
  Company Number: None

PATIENT
  Age: 79 Year
  Sex: Male
  Weight: 75 kg

DRUGS (2)
  1. DAPTOMYCIN [Suspect]
     Indication: WOUND INFECTION
     Dosage: 450 MG Q48 IV
     Route: 042
     Dates: start: 20100810, end: 20100814
  2. DAPTOMYCIN [Suspect]
     Indication: WOUND INFECTION
     Dosage: 450 MG Q24 IV
     Route: 042
     Dates: start: 20100816, end: 20100821

REACTIONS (1)
  - BLOOD CREATINE PHOSPHOKINASE INCREASED [None]
